FAERS Safety Report 7559185-0 (Version None)
Quarter: 2011Q2

REPORT INFORMATION
  Report Type: 
  Country: None (occurrence: None)
  Receive Date: 20110613
  Receipt Date: 20110531
  Transmission Date: 20111010
  Serious: Yes (Other)
  Sender: FDA-Public Use
  Company Number: ACO_24988_2011

PATIENT
  Age: 64 Year
  Sex: Female
  Weight: 79.4 kg

DRUGS (7)
  1. VALIUM [Concomitant]
  2. AMPYRA [Suspect]
     Indication: BALANCE DISORDER
     Dosage: 10 MG, QD, ORAL
     Route: 048
     Dates: start: 20110301, end: 20110101
  3. AMPYRA [Suspect]
     Indication: BALANCE DISORDER
     Dosage: 10 MG, QD, ORAL
     Route: 048
     Dates: start: 20110101, end: 20110530
  4. ANTIHYPERTENSIVES [Concomitant]
  5. PROZAC [Concomitant]
  6. BACLOFEN [Concomitant]
  7. THYROID THERAPY [Concomitant]

REACTIONS (8)
  - ACCIDENTAL OVERDOSE [None]
  - DRUG DOSE OMISSION [None]
  - BALANCE DISORDER [None]
  - FATIGUE [None]
  - INAPPROPRIATE SCHEDULE OF DRUG ADMINISTRATION [None]
  - TREMOR [None]
  - TOOTH FRACTURE [None]
  - CONFUSIONAL STATE [None]
